FAERS Safety Report 6289100-1 (Version None)
Quarter: 2009Q3

REPORT INFORMATION
  Report Type: 
  Country: None (occurrence: None)
  Receive Date: 20090729
  Receipt Date: 20090720
  Transmission Date: 20100115
  Serious: Yes (Hospitalization)
  Sender: FDA-Public Use
  Company Number: FR-ASTRAZENECA-2009SE05225

PATIENT
  Age: 82 Year
  Sex: Female

DRUGS (6)
  1. TENORMIN [Suspect]
     Indication: HYPERTENSION
     Route: 048
     Dates: end: 20090111
  2. NEXIUM [Concomitant]
     Route: 048
  3. LYRICA [Concomitant]
     Route: 048
  4. ANAFRANIL [Concomitant]
     Route: 048
  5. ZANIDIP [Concomitant]
     Route: 048
     Dates: end: 20090116
  6. LASIX [Concomitant]
     Route: 048

REACTIONS (1)
  - ATRIOVENTRICULAR BLOCK SECOND DEGREE [None]
